FAERS Safety Report 26081929 (Version 1)
Quarter: 2025Q4

REPORT INFORMATION
  Report Type: Spontaneous
  Country: US (occurrence: None)
  Receive Date: 20251121
  Receipt Date: 20251121
  Transmission Date: 20260118
  Serious: Yes (Other)
  Sender: FDA-CTU
  Company Number: None

PATIENT
  Age: 40 Year
  Sex: Female
  Weight: 59.87 kg

DRUGS (2)
  1. ESTRADIOL TRANSDERMAL SYSTEM [Suspect]
     Active Substance: ESTRADIOL
  2. BIJUVA [Concomitant]
     Active Substance: ESTRADIOL\PROGESTERONE
     Dosage: FREQUENCY : DAILY;?
     Route: 048

REACTIONS (1)
  - Drug ineffective [None]
